FAERS Safety Report 25837753 (Version 2)
Quarter: 2025Q3

REPORT INFORMATION
  Report Type: Spontaneous
  Country: EU (occurrence: EU)
  Receive Date: 20250923
  Receipt Date: 20250926
  Transmission Date: 20251020
  Serious: Yes (Other)
  Sender: BAUSCH AND LOMB
  Company Number: EU-AMGEN-CZESP2025182195

PATIENT
  Age: 59 Year
  Sex: Male

DRUGS (4)
  1. DEXAMETHASONE [Suspect]
     Active Substance: DEXAMETHASONE
     Indication: Product used for unknown indication
     Route: 065
     Dates: start: 20241209, end: 20250428
  2. KYPROLIS [Suspect]
     Active Substance: CARFILZOMIB
     Indication: Product used for unknown indication
     Route: 065
     Dates: start: 20241209, end: 20250428
  3. KYPROLIS [Suspect]
     Active Substance: CARFILZOMIB
     Route: 065
  4. SARCLISA [Suspect]
     Active Substance: ISATUXIMAB-IRFC
     Indication: Product used for unknown indication
     Route: 065
     Dates: start: 20241209, end: 20250428

REACTIONS (3)
  - Decubitus ulcer [Unknown]
  - Infected skin ulcer [Unknown]
  - Off label use [Unknown]

NARRATIVE: CASE EVENT DATE: 20241209
